FAERS Safety Report 6862436-9 (Version None)
Quarter: 2010Q3

REPORT INFORMATION
  Report Type: 
  Country: None (occurrence: None)
  Receive Date: 20100721
  Receipt Date: 20100713
  Transmission Date: 20110219
  Serious: Yes (Hospitalization)
  Sender: FDA-Public Use
  Company Number: US-ALEXION-A201000698

PATIENT
  Sex: Female

DRUGS (12)
  1. SOLIRIS [Suspect]
     Indication: PAROXYSMAL NOCTURNAL HAEMOGLOBINURIA
     Dosage: 600 MG QWK, UNK
     Route: 042
     Dates: start: 20100211, end: 20100301
  2. SOLIRIS [Suspect]
     Dosage: 900 MG Q2WKS, UNK
     Route: 042
     Dates: start: 20100312
  3. ISOSORB                            /00586302/ [Concomitant]
  4. ASPIRIN [Concomitant]
  5. SIMVASTATIN [Concomitant]
  6. COUMADIN [Concomitant]
  7. PREDNISONE [Concomitant]
  8. AMITRIPTYLINE HYDROCHLORIDE [Concomitant]
  9. VITAMIN C                          /00008001/ [Concomitant]
  10. MULTI-VITAMINS [Concomitant]
  11. GLUCOSAMINE [Concomitant]
  12. ISOSORBID                          /00586303/ [Concomitant]

REACTIONS (10)
  - CEREBROVASCULAR ACCIDENT [None]
  - CONFUSIONAL STATE [None]
  - FATIGUE [None]
  - HAEMATOCRIT DECREASED [None]
  - HAEMOGLOBIN DECREASED [None]
  - HEADACHE [None]
  - HERPES VIRUS INFECTION [None]
  - LIP BLISTER [None]
  - MENTAL IMPAIRMENT [None]
  - PYREXIA [None]
